FAERS Safety Report 17146048 (Version 1)
Quarter: 2019Q4

REPORT INFORMATION
  Report Type: Spontaneous
  Country: US (occurrence: US)
  Receive Date: 20191212
  Receipt Date: 20191212
  Transmission Date: 20200122
  Serious: No
  Sender: FDA-Public Use
  Company Number: US-009507513-1912USA005080

PATIENT
  Sex: Female

DRUGS (3)
  1. PREGNYL [Suspect]
     Active Substance: CHORIOGONADOTROPIN ALFA
     Dosage: 5-20 UNITS FOR 8-10 DAYS
     Route: 058
     Dates: start: 20190908
  2. PREGNYL [Suspect]
     Active Substance: CHORIOGONADOTROPIN ALFA
     Indication: INFERTILITY FEMALE
     Dosage: 10,000 UNITS FOR 1 DAY
     Route: 058
     Dates: start: 20190907, end: 20190907
  3. GANIRELIX ACETATE INJECTION [Suspect]
     Active Substance: GANIRELIX ACETATE
     Indication: INFERTILITY FEMALE
     Dosage: 250 MICROGRAM (MCG), DAILY
     Route: 058
     Dates: start: 20190917

REACTIONS (5)
  - Pruritus [Unknown]
  - Insomnia [Unknown]
  - Musculoskeletal pain [Unknown]
  - Rash [Unknown]
  - Food interaction [Unknown]

NARRATIVE: CASE EVENT DATE: 2019
